FAERS Safety Report 25101193 (Version 2)
Quarter: 2025Q1

REPORT INFORMATION
  Report Type: Spontaneous
  Country: US (occurrence: US)
  Receive Date: 20250320
  Receipt Date: 20250320
  Transmission Date: 20250409
  Serious: No
  Sender: GALDERMA
  Company Number: US-GALDERMA-US2025001372

PATIENT

DRUGS (1)
  1. NEMLUVIO [Suspect]
     Active Substance: NEMOLIZUMAB-ILTO
     Indication: Dermatitis atopic
     Route: 058
     Dates: start: 2025, end: 2025

REACTIONS (5)
  - Skin exfoliation [Unknown]
  - Dry skin [Unknown]
  - Erythema [Unknown]
  - Eczema [Unknown]
  - Eczema nummular [Unknown]

NARRATIVE: CASE EVENT DATE: 20250101
